FAERS Safety Report 9873956 (Version 2)
Quarter: 2014Q1

REPORT INFORMATION
  Report Type: Other
  Country: US (occurrence: US)
  Receive Date: 20140206
  Receipt Date: 20140206
  Transmission Date: 20141002
  Serious: No
  Sender: FDA-Public Use
  Company Number: US-ACORDA-ACO_35133_2013

PATIENT
  Sex: Female

DRUGS (3)
  1. AMPYRA [Suspect]
     Indication: GAIT DISTURBANCE
     Dosage: 10 MG, BID
     Route: 048
  2. MIRAPEX [Concomitant]
     Indication: PRODUCT USED FOR UNKNOWN INDICATION
     Dosage: 0.5 MG, UNK
     Route: 065
  3. REBIF [Concomitant]
     Indication: PRODUCT USED FOR UNKNOWN INDICATION
     Dosage: 44 MG, THREE TIMES PER WEEK
     Route: 058

REACTIONS (6)
  - Gait disturbance [Recovered/Resolved with Sequelae]
  - Fatigue [Recovered/Resolved]
  - Memory impairment [Unknown]
  - Therapeutic response unexpected [Recovered/Resolved]
  - Adverse event [Recovered/Resolved]
  - Drug dose omission [Unknown]
